FAERS Safety Report 21454170 (Version 3)
Quarter: 2022Q4

REPORT INFORMATION
  Report Type: Spontaneous
  Country: US (occurrence: US)
  Receive Date: 20221013
  Receipt Date: 20221103
  Transmission Date: 20230113
  Serious: Yes (Death, Life-Threatening, Hospitalization, Other)
  Sender: FDA-Public Use
  Company Number: US-UNITED THERAPEUTICS-UNT-2022-023962

PATIENT
  Sex: Female
  Weight: 49.569 kg

DRUGS (4)
  1. REMODULIN [Suspect]
     Active Substance: TREPROSTINIL
     Indication: Pulmonary arterial hypertension
     Dosage: UNK, CONTINUING
     Route: 041
  2. REMODULIN [Suspect]
     Active Substance: TREPROSTINIL
     Dosage: 0.006 ?G/KG, CONTINUING
     Route: 041
     Dates: start: 2022
  3. ADCIRCA [Suspect]
     Active Substance: TADALAFIL
     Indication: Pulmonary arterial hypertension
     Dosage: 40 MG, QD
     Route: 048
     Dates: start: 20210520
  4. OPSUMIT [Concomitant]
     Active Substance: MACITENTAN
     Indication: Product used for unknown indication
     Dosage: UNK
     Route: 065

REACTIONS (11)
  - Death [Fatal]
  - Cardiac arrest [Unknown]
  - Ventricular tachycardia [Unknown]
  - Ventricular fibrillation [Unknown]
  - Acidosis [Unknown]
  - Multiple organ dysfunction syndrome [Unknown]
  - Intestinal ischaemia [Unknown]
  - Hypoxia [Unknown]
  - Staphylococcal bacteraemia [Unknown]
  - Arthritis bacterial [Unknown]
  - Renal impairment [Unknown]

NARRATIVE: CASE EVENT DATE: 20220101
